FAERS Safety Report 12232293 (Version 3)
Quarter: 2016Q3

REPORT INFORMATION
  Report Type: Report from Study
  Country: US (occurrence: US)
  Receive Date: 20160401
  Receipt Date: 20160720
  Transmission Date: 20161109
  Serious: Yes (Hospitalization, Other)
  Sender: FDA-Public Use
  Company Number: US-JNJFOC-20160330126

PATIENT
  Age: 88 Year
  Sex: Male

DRUGS (18)
  1. COMPAZINE [Concomitant]
     Active Substance: PROCHLORPERAZINE MALEATE
  2. ALLEGRA [Concomitant]
     Active Substance: FEXOFENADINE HYDROCHLORIDE
  3. IMBRUVICA [Suspect]
     Active Substance: IBRUTINIB
     Indication: CHRONIC LYMPHOCYTIC LEUKAEMIA
     Route: 048
     Dates: start: 20140305
  4. COMBIVENT [Concomitant]
     Active Substance: ALBUTEROL SULFATE\IPRATROPIUM BROMIDE
  5. CARAFATE [Concomitant]
     Active Substance: SUCRALFATE
  6. VICODIN [Concomitant]
     Active Substance: ACETAMINOPHEN\HYDROCODONE BITARTRATE
  7. VALACYCLOVIR [Concomitant]
     Active Substance: VALACYCLOVIR HYDROCHLORIDE
  8. MUCINEX [Concomitant]
     Active Substance: GUAIFENESIN
  9. RITUXIMAB [Concomitant]
     Active Substance: RITUXIMAB
  10. WARFARIN [Concomitant]
     Active Substance: WARFARIN
  11. ATIVAN [Concomitant]
     Active Substance: LORAZEPAM
  12. FLUCONAZOLE. [Concomitant]
     Active Substance: FLUCONAZOLE
  13. ALBUTEROL. [Concomitant]
     Active Substance: ALBUTEROL
  14. PROSCAR [Concomitant]
     Active Substance: FINASTERIDE
  15. ZOFRAN [Concomitant]
     Active Substance: ONDANSETRON HYDROCHLORIDE
  16. SYMBICORT [Concomitant]
     Active Substance: BUDESONIDE\FORMOTEROL FUMARATE DIHYDRATE
  17. NEXIUM [Concomitant]
     Active Substance: ESOMEPRAZOLE MAGNESIUM
  18. ALLOPURINOL. [Concomitant]
     Active Substance: ALLOPURINOL

REACTIONS (11)
  - Accidental overdose [Unknown]
  - Prostatomegaly [Unknown]
  - Atrial fibrillation [Unknown]
  - Ageusia [Unknown]
  - Pneumonia [Unknown]
  - Decreased appetite [Unknown]
  - Contusion [Unknown]
  - Dyspnoea [Unknown]
  - Fluid retention [Unknown]
  - Peripheral swelling [Unknown]
  - Cough [Unknown]

NARRATIVE: CASE EVENT DATE: 201603
